FAERS Safety Report 25058264 (Version 2)
Quarter: 2025Q1

REPORT INFORMATION
  Report Type: Spontaneous
  Country: SA (occurrence: SA)
  Receive Date: 20250310
  Receipt Date: 20250312
  Transmission Date: 20250409
  Serious: Yes (Other)
  Sender: SANOFI AVENTIS
  Company Number: SA-DialogSolutions-SAAVPROD-PI744028-C1

PATIENT
  Age: 2 Year
  Sex: Male

DRUGS (6)
  1. FLUDARABINE PHOSPHATE [Suspect]
     Active Substance: FLUDARABINE PHOSPHATE
     Indication: Immunodeficiency
     Dosage: 40 MG/M2, QD (-5, -4, -3, -2)
  2. ANTI-THYMOCYTE GLOBULIN (RABBIT) NOS [Suspect]
     Active Substance: LAPINE T-LYMPHOCYTE IMMUNE GLOBULIN
     Indication: Immunodeficiency
     Dosage: 2.5 MG/M2, QD (-5 AND ? 4)
  3. BUSULFAN [Suspect]
     Active Substance: BUSULFAN
     Indication: Immunodeficiency
     Dosage: 5 MG/KG, QD DIVIDED EVERY 6 HOURS FOR 4 DAYS (-5, -4, -3, -2)
  4. METHOTREXATE [Suspect]
     Active Substance: METHOTREXATE
     Indication: Graft versus host disease in skin
  5. CYCLOSPORINE [Suspect]
     Active Substance: CYCLOSPORINE
     Indication: Graft versus host disease in skin
  6. AZATHIOPRINE [Concomitant]
     Active Substance: AZATHIOPRINE
     Indication: Inflammatory bowel disease

REACTIONS (7)
  - Pericardial effusion [Recovered/Resolved]
  - Febrile neutropenia [Unknown]
  - Off label use [Unknown]
  - Pneumonia viral [Recovered/Resolved]
  - Adenovirus infection [Recovered/Resolved]
  - Rhinovirus infection [Recovered/Resolved]
  - Enterovirus infection [Recovered/Resolved]
